FAERS Safety Report 6027780-6 (Version None)
Quarter: 2009Q1

REPORT INFORMATION
  Report Type: 
  Country: None (occurrence: None)
  Receive Date: 20090105
  Receipt Date: 20081223
  Transmission Date: 20090719
  Serious: Yes (Other)
  Sender: FDA-Public Use
  Company Number: NL-ROXANE LABORATORIES, INC.-2008-RO-00471RO

PATIENT
  Age: 55 Year
  Sex: Female

DRUGS (4)
  1. FUROSEMIDE [Suspect]
  2. NAPROXEN [Suspect]
  3. ZOLPIDEM [Suspect]
  4. OMEPRAZOLE [Suspect]

REACTIONS (1)
  - SOMNAMBULISM [None]
